FAERS Safety Report 11145741 (Version 1)
Quarter: 2015Q2

REPORT INFORMATION
  Report Type: Spontaneous
  Country: US (occurrence: None)
  Receive Date: 20150527
  Receipt Date: 20150527
  Transmission Date: 20150821
  Serious: No
  Sender: FDA-Public Use
  Company Number: None

PATIENT
  Age: 76 Year
  Sex: Male
  Weight: 83 kg

DRUGS (3)
  1. NEOSTIGMINE [Suspect]
     Active Substance: NEOSTIGMINE
     Indication: NEUROGENIC BOWEL
     Route: 042
     Dates: start: 20150205, end: 20150206
  2. NEOSTIGMINE [Suspect]
     Active Substance: NEOSTIGMINE
     Indication: QUADRIPLEGIA
     Route: 042
     Dates: start: 20150205, end: 20150206
  3. NEOSTIGMINE [Suspect]
     Active Substance: NEOSTIGMINE
     Indication: COLONIC PSEUDO-OBSTRUCTION
     Route: 042
     Dates: start: 20150205, end: 20150206

REACTIONS (1)
  - Bradycardia [None]

NARRATIVE: CASE EVENT DATE: 20150206
